FAERS Safety Report 8964928 (Version 2)
Quarter: 2012Q4

REPORT INFORMATION
  Report Type: 
  Country: CA (occurrence: CA)
  Receive Date: 20121213
  Receipt Date: 20121221
  Transmission Date: 20130627
  Serious: Yes (Other)
  Sender: FDA-Public Use
  Company Number: CA-BAYER-2012-130857

PATIENT
  Age: 46 Year
  Sex: Female

DRUGS (1)
  1. CANESTEN 1 COMFORTAB COMBI-PAK,CANESTEN COMFORTAB COMBI-PAK 1 [Suspect]
     Dosage: using for last couple of years
     Route: 067

REACTIONS (1)
  - Vaginal haemorrhage [None]
